FAERS Safety Report 9034602 (Version 1)
Quarter: 2013Q1

REPORT INFORMATION
  Report Type: Spontaneous
  Country: JP (occurrence: None)
  Receive Date: 20130115
  Receipt Date: 20130115
  Transmission Date: 20140127
  Serious: No
  Sender: FDA-Public Use
  Company Number: TCI2012A07037

PATIENT
  Sex: 0

DRUGS (1)
  1. LANSAP [Suspect]
     Route: 048
     Dates: start: 20121201

REACTIONS (1)
  - Diplopia [None]
